FAERS Safety Report 6438494-2 (Version None)
Quarter: 2009Q4

REPORT INFORMATION
  Report Type: 
  Country: None (occurrence: None)
  Receive Date: 20091110
  Receipt Date: 20091029
  Transmission Date: 20100525
  Serious: Yes (Death)
  Sender: FDA-Public Use
  Company Number: 2009AP004380

PATIENT
  Sex: Female

DRUGS (2)
  1. RISPERIDONE [Suspect]
  2. ROPINIROLE HYDROCHLORIDE [Suspect]
     Dosage: 9 MG;TAB;PO;QD
     Route: 048

REACTIONS (1)
  - MEDICATION ERROR [None]
